FAERS Safety Report 7194121-0 (Version None)
Quarter: 2010Q4

REPORT INFORMATION
  Report Type: 
  Country: None (occurrence: None)
  Receive Date: 20101223
  Receipt Date: 20101006
  Transmission Date: 20110411
  Serious: No
  Sender: FDA-Public Use
  Company Number: US-AMGEN-TCS437030

PATIENT

DRUGS (9)
  1. ENBREL [Suspect]
     Indication: ANKYLOSING SPONDYLITIS
     Dosage: 50 MG, QWK
     Route: 058
     Dates: start: 20100121, end: 20100726
  2. REMICADE [Concomitant]
  3. CARVEDILOL [Concomitant]
     Dosage: 25 MG, BID
  4. INDOMETHACIN [Concomitant]
     Dosage: 50 MG, QID
  5. LISINOPRIL AND HYDROCHLOROTHIAZIDE [Concomitant]
     Dosage: UNK UNK, QD
     Route: 048
  6. METHOTREXATE SODIUM [Concomitant]
     Dosage: 2.5 MG, QWK
     Route: 048
     Dates: start: 20070601
  7. OMEPRAZOLE [Concomitant]
     Dosage: 20 MG, QD
  8. PREDNISOLONE ACETATE [Concomitant]
     Dosage: 1 %, UNK
     Route: 047
  9. ADALIMUMAB [Concomitant]
     Dosage: UNK UNK, UNK
     Dates: start: 20070701

REACTIONS (6)
  - ANKYLOSING SPONDYLITIS [None]
  - BONE PAIN [None]
  - CELLULITIS [None]
  - INFECTION [None]
  - MUSCULOSKELETAL PAIN [None]
  - MUSCULOSKELETAL STIFFNESS [None]
